FAERS Safety Report 15474572 (Version 1)
Quarter: 2018Q4

REPORT INFORMATION
  Report Type: Report from Study
  Country: JP (occurrence: JP)
  Receive Date: 20181008
  Receipt Date: 20181008
  Transmission Date: 20190205
  Serious: No
  Sender: FDA-Public Use
  Company Number: JP-PFIZER INC-2018399684

PATIENT
  Age: 48 Year
  Sex: Female

DRUGS (2)
  1. XALKORI [Suspect]
     Active Substance: CRIZOTINIB
     Indication: NON-SMALL CELL LUNG CANCER
     Dosage: 250 MG, UNK
     Dates: start: 20150428, end: 20150726
  2. XALKORI [Suspect]
     Active Substance: CRIZOTINIB
     Dosage: 200 MG, UNK
     Dates: start: 20150815, end: 20151002

REACTIONS (13)
  - Diarrhoea [Recovered/Resolved]
  - Head discomfort [Recovered/Resolved]
  - Hiccups [Recovered/Resolved]
  - Vomiting [Recovered/Resolved]
  - Dysgeusia [Recovered/Resolved]
  - Visual field defect [Not Recovered/Not Resolved]
  - Alanine aminotransferase increased [Recovered/Resolved]
  - Oropharyngeal discomfort [Recovered/Resolved]
  - Aspartate aminotransferase increased [Recovered/Resolved]
  - Upper respiratory tract inflammation [Recovered/Resolved]
  - Nausea [Recovered/Resolved]
  - Malaise [Recovered/Resolved]
  - Feeling abnormal [Recovered/Resolved]

NARRATIVE: CASE EVENT DATE: 20150430
